FAERS Safety Report 24992719 (Version 2)
Quarter: 2025Q3

REPORT INFORMATION
  Report Type: Spontaneous
  Country: EU (occurrence: EU)
  Receive Date: 20250221
  Receipt Date: 20250816
  Transmission Date: 20251021
  Serious: No
  Sender: ALEXION PHARMACEUTICALS
  Company Number: EU-TEVA-2019-DE-1058971

PATIENT
  Age: 68 Year
  Sex: Male

DRUGS (8)
  1. NEXIUM [Interacting]
     Active Substance: ESOMEPRAZOLE MAGNESIUM
  2. ESCITALOPRAM [Interacting]
     Active Substance: ESCITALOPRAM OXALATE
     Indication: Anxiety disorder
     Dosage: 10 MILLIGRAM, QD
     Dates: start: 20190522
  3. FINASTERIDE [Interacting]
     Active Substance: FINASTERIDE
  4. IBUPROFEN [Interacting]
     Active Substance: IBUPROFEN
  5. IMODIUM [Interacting]
     Active Substance: LOPERAMIDE HYDROCHLORIDE
  6. METOCLOPRAMIDE [Interacting]
     Active Substance: METOCLOPRAMIDE
  7. TAMSULOSIN [Interacting]
     Active Substance: TAMSULOSIN
  8. TRIMIPRAMINE MALEATE [Interacting]
     Active Substance: TRIMIPRAMINE MALEATE

REACTIONS (4)
  - Drug interaction [Unknown]
  - Sinusitis [Not Recovered/Not Resolved]
  - Tinnitus [Not Recovered/Not Resolved]
  - Nausea [Not Recovered/Not Resolved]

NARRATIVE: CASE EVENT DATE: 20190522
